FAERS Safety Report 18623488 (Version 1)
Quarter: 2020Q4

REPORT INFORMATION
  Report Type: Report from Study
  Country: IT (occurrence: IT)
  Receive Date: 20201216
  Receipt Date: 20201216
  Transmission Date: 20210114
  Serious: Yes (Other)
  Sender: FDA-Public Use
  Company Number: IT-ROCHE-2730357

PATIENT
  Age: 71 Year
  Sex: Male

DRUGS (3)
  1. RITUXIMAB. [Suspect]
     Active Substance: RITUXIMAB
     Indication: B-CELL LYMPHOMA
     Dosage: INTRAVENOUS RITUXIMAB 375 MG/M2 ON DAYS 1, 8, 15 AND 22 (DAY 1 OF WEEKS 1, 2, 3 AND 4)??DATE LAST DO
     Route: 042
     Dates: start: 20151030
  2. CHLORAMBUCIL [Suspect]
     Active Substance: CHLORAMBUCIL
     Indication: B-CELL LYMPHOMA
     Dosage: DATE FIRST DOSE 26/OCT/2015
     Route: 048
     Dates: start: 20151030
  3. CHLORAMBUCIL [Suspect]
     Active Substance: CHLORAMBUCIL
     Route: 042
     Dates: start: 20151026

REACTIONS (1)
  - Lung neoplasm malignant [Unknown]

NARRATIVE: CASE EVENT DATE: 20170926
